FAERS Safety Report 7575687-5 (Version None)
Quarter: 2011Q2

REPORT INFORMATION
  Report Type: 
  Country: None (occurrence: None)
  Receive Date: 20110628
  Receipt Date: 20110620
  Transmission Date: 20111010
  Serious: Yes (Hospitalization)
  Sender: FDA-Public Use
  Company Number: US-BIOGENIDEC-2011BI020592

PATIENT
  Age: 52 Year
  Sex: Male

DRUGS (4)
  1. TYSABRI [Suspect]
     Indication: MULTIPLE SCLEROSIS
     Route: 042
     Dates: start: 20110311
  2. AVONEX [Concomitant]
     Indication: MULTIPLE SCLEROSIS
     Route: 030
     Dates: start: 20100730
  3. AVONEX [Concomitant]
     Route: 030
     Dates: start: 20051130
  4. AVONEX [Concomitant]
     Route: 030
     Dates: start: 20100730, end: 20110121

REACTIONS (5)
  - CONVULSION [None]
  - BRAIN NEOPLASM BENIGN [None]
  - JOINT SPRAIN [None]
  - MUSCLE SPASMS [None]
  - BLISTER [None]
